FAERS Safety Report 8919692 (Version 1)
Quarter: 2012Q4

REPORT INFORMATION
  Report Type: 
  Country: US (occurrence: US)
  Receive Date: 20121121
  Receipt Date: 20121121
  Transmission Date: 20130627
  Serious: Yes (Hospitalization)
  Sender: FDA-Public Use
  Company Number: US-ELI_LILLY_AND_COMPANY-US201211003810

PATIENT
  Sex: Male

DRUGS (5)
  1. ZYPREXA RELPREVV [Suspect]
     Indication: SCHIZOPHRENIA
     Dosage: 405 mg, monthly (1/M)
  2. ZYPREXA [Suspect]
     Indication: SCHIZOPHRENIA
     Dosage: 20 mg, qd
  3. PROZAC [Suspect]
     Dosage: 2 mg, UNK
  4. CLOZARIL [Concomitant]
  5. DEPAKOTE [Concomitant]
     Dosage: 1000 mg, UNK

REACTIONS (3)
  - Psychiatric decompensation [Not Recovered/Not Resolved]
  - Drug ineffective [Unknown]
  - Prescribed overdose [Unknown]
